FAERS Safety Report 23201695 (Version 1)
Quarter: 2023Q4

REPORT INFORMATION
  Report Type: Spontaneous
  Country: US (occurrence: None)
  Receive Date: 20231117
  Receipt Date: 20231117
  Transmission Date: 20240109
  Serious: Yes (Hospitalization)
  Sender: FDA-Public Use
  Company Number: None

PATIENT
  Age: 81 Year
  Sex: Female

DRUGS (1)
  1. TEMOZOLOMIDE [Suspect]
     Active Substance: TEMOZOLOMIDE
     Dosage: FREQUENCY : DAILY;?
     Dates: start: 20231008

REACTIONS (6)
  - Pulmonary embolism [None]
  - Fall [None]
  - Contusion [None]
  - Face injury [None]
  - Abdominal pain [None]
  - Limb injury [None]
